FAERS Safety Report 11323955 (Version 1)
Quarter: 2015Q3

REPORT INFORMATION
  Report Type: Spontaneous
  Country: US (occurrence: US)
  Receive Date: 20150730
  Receipt Date: 20150730
  Transmission Date: 20151125
  Serious: Yes (Hospitalization, Other)
  Sender: FDA-Public Use
  Company Number: PHHY2015US087909

PATIENT
  Age: 29 Year
  Sex: Female

DRUGS (1)
  1. HEPARIN [Suspect]
     Active Substance: HEPARIN SODIUM
     Indication: PULMONARY EMBOLISM
     Route: 065

REACTIONS (4)
  - Laceration [Recovering/Resolving]
  - Hypotension [Recovering/Resolving]
  - Extravasation [Recovering/Resolving]
  - Anaemia [Recovering/Resolving]
